FAERS Safety Report 7027110-7 (Version None)
Quarter: 2010Q3

REPORT INFORMATION
  Report Type: 
  Country: None (occurrence: None)
  Receive Date: 20100929
  Receipt Date: 20100913
  Transmission Date: 20110219
  Serious: Yes (Hospitalization, Other)
  Sender: FDA-Public Use
  Company Number: 2010MA002600

PATIENT
  Age: 23 Year
  Sex: Male

DRUGS (7)
  1. GABAPENTIN [Suspect]
     Dosage: 60 MG;QD
  2. CARBAMAZEPINE [Suspect]
     Dosage: 1200 MG;QD
  3. VALPROATE (NO PREF. NAME) [Suspect]
     Dosage: 1400 MG;QD
  4. PHENYTOIN [Concomitant]
  5. PHENOBARBITAL [Concomitant]
  6. SULTIAME [Concomitant]
  7. ACETAZOLAMIDE [Concomitant]

REACTIONS (5)
  - CEREBRAL ATROPHY [None]
  - CONDITION AGGRAVATED [None]
  - CONVULSION [None]
  - MUSCLE SPASMS [None]
  - MYOCLONUS [None]
